FAERS Safety Report 8591192-1 (Version None)
Quarter: 2012Q3

REPORT INFORMATION
  Report Type: 
  Country: None (occurrence: None)
  Receive Date: 20120813
  Receipt Date: 20120808
  Transmission Date: 20120928
  Serious: Yes (Hospitalization, Other)
  Sender: FDA-Public Use
  Company Number: US-BAYER-2012-068070

PATIENT
  Age: 44 Year
  Sex: Male

DRUGS (4)
  1. KOGENATE FS [Suspect]
     Indication: HAEMARTHROSIS
     Dosage: 1 TO 2 TIMES/MONTH
  2. KOGENATE FS [Suspect]
     Indication: HAEMORRHAGE PROPHYLAXIS
  3. RECOMBINATE [Concomitant]
     Indication: HAEMARTHROSIS
     Dosage: 1 TO 2 TIMES/MONTH
  4. RECOMBINATE [Concomitant]
     Indication: HAEMORRHAGE PROPHYLAXIS

REACTIONS (3)
  - INCORRECT DOSE ADMINISTERED [None]
  - ANTI FACTOR VIII ANTIBODY POSITIVE [None]
  - MELAENA [None]
